FAERS Safety Report 9201875 (Version 2)
Quarter: 2013Q4

REPORT INFORMATION
  Report Type: Spontaneous
  Country: US (occurrence: US)
  Receive Date: 20130401
  Receipt Date: 20131202
  Transmission Date: 20140711
  Serious: Yes (Other)
  Sender: FDA-Public Use
  Company Number: US-BAYER-2013-038299

PATIENT
  Age: 25 Year
  Sex: Female

DRUGS (9)
  1. YAZ [Suspect]
     Dosage: UNK
  2. YASMIN [Suspect]
     Dosage: UNK
  3. OCELLA [Suspect]
     Dosage: UNK
  4. OMEPRAZOLE [Concomitant]
     Dosage: 20 MG, UNK
  5. METFORMIN ER [Concomitant]
     Dosage: 750 MG, UNK
  6. LEVOTHYROXINE [Concomitant]
     Dosage: 75 MCG
  7. LEVOTHYROXINE [Concomitant]
     Dosage: 200 MCG
  8. LEVAQUIN [Concomitant]
     Dosage: 500 MG, UNK
  9. AMOXICILLIN [Concomitant]
     Dosage: 875 MG, UNK

REACTIONS (5)
  - Cholecystitis [None]
  - Gallbladder injury [None]
  - Injury [None]
  - Pain [None]
  - Pain [None]
